FAERS Safety Report 6788544-9 (Version None)
Quarter: 2010Q2

REPORT INFORMATION
  Report Type: 
  Country: None (occurrence: None)
  Receive Date: 20100623
  Receipt Date: 20080529
  Transmission Date: 20101027
  Serious: Yes (Other)
  Sender: FDA-Public Use
  Company Number: US-PFIZER INC-2008025674

PATIENT
  Age: 19 Year
  Sex: Male

DRUGS (2)
  1. GEODON [Suspect]
     Indication: DEPRESSION
  2. GEODON [Suspect]
     Indication: BULIMIA NERVOSA

REACTIONS (1)
  - HYPERSENSITIVITY [None]
